FAERS Safety Report 15587731 (Version 2)
Quarter: 2018Q4

REPORT INFORMATION
  Report Type: Spontaneous
  Country: US (occurrence: US)
  Receive Date: 20181105
  Receipt Date: 20181109
  Transmission Date: 20190205
  Serious: Yes (Other)
  Sender: FDA-Public Use
  Company Number: US-SAKK-2018SA301692AA

PATIENT
  Age: 46 Year

DRUGS (1)
  1. LANTUS [Suspect]
     Active Substance: INSULIN GLARGINE
     Dosage: 45 U, QD

REACTIONS (4)
  - Spinal column stenosis [Unknown]
  - Hypotonia [Unknown]
  - Product availability issue [Unknown]
  - Product dose omission [Unknown]
